FAERS Safety Report 20197123 (Version 1)
Quarter: 2021Q4

REPORT INFORMATION
  Report Type: Spontaneous
  Country: US (occurrence: US)
  Receive Date: 20211217
  Receipt Date: 20211217
  Transmission Date: 20220303
  Serious: Yes (Death, Hospitalization)
  Sender: FDA-Public Use
  Company Number: US-JNJFOC-20211214124

PATIENT
  Age: 35 Year
  Sex: Female
  Weight: 108 kg

DRUGS (3)
  1. TYLENOL [Suspect]
     Active Substance: ACETAMINOPHEN
     Indication: Pain
     Dosage: TOTAL DOSE OF 6500 MG (UP TO 10 PER DAY) OF (ACETAMINOPHEN 650 MG) FOR 14 DAYS
     Route: 065
  2. OXYCODONE [Concomitant]
     Active Substance: OXYCODONE
     Indication: Product used for unknown indication
     Route: 065
  3. ZOLOFT [Concomitant]
     Active Substance: SERTRALINE HYDROCHLORIDE
     Indication: Product used for unknown indication
     Dosage: AT BEDTIME
     Route: 065

REACTIONS (9)
  - Acute hepatic failure [Fatal]
  - Accidental overdose [Fatal]
  - Cardiac arrest [Fatal]
  - Gastrointestinal haemorrhage [Fatal]
  - Arrhythmia [Fatal]
  - Pneumonia aspiration [Fatal]
  - Bacterial infection [Fatal]
  - Blood urea increased [Fatal]
  - Blood creatinine increased [Fatal]
